FAERS Safety Report 4526963-1 (Version None)
Quarter: 2004Q4

REPORT INFORMATION
  Report Type: 
  Country: None (occurrence: None)
  Receive Date: 20041209
  Receipt Date: 20041202
  Transmission Date: 20050328
  Serious: No
  Sender: FDA-Public Use
  Company Number: HQWYE512610DEC03

PATIENT
  Age: 9 Month
  Sex: Male
  Weight: 11 kg

DRUGS (2)
  1. REFACTO [Suspect]
     Indication: PROPHYLAXIS
     Dosage: 300 IU DAILY PROPHYLAXIS, INTRAVENOUS; UNKNOWN DOSE EVERY OTHER DAY, INTRAVENOUS
     Route: 042
     Dates: start: 20030101
  2. REFACTO [Suspect]

REACTIONS (4)
  - COAGULATION FACTOR VIII LEVEL DECREASED [None]
  - IMPAIRED HEALING [None]
  - METABOLIC DISORDER [None]
  - POST PROCEDURAL HAEMATOMA [None]
